FAERS Safety Report 4896766-7 (Version None)
Quarter: 2005Q4

REPORT INFORMATION
  Report Type: 
  Country: None (occurrence: None)
  Receive Date: 20051223
  Receipt Date: 20050919
  Transmission Date: 20060501
  Serious: Yes (Other)
  Sender: FDA-Public Use
  Company Number: CHPA2005US03303

PATIENT
  Age: 37 Year
  Sex: Male

DRUGS (3)
  1. TRANSDERM SCOP [Suspect]
     Indication: MOTION SICKNESS
     Dosage: TRANSDERMAL
     Route: 062
     Dates: start: 20050101, end: 20050101
  2. ATIVAN [Suspect]
     Indication: MOTION SICKNESS
     Dates: start: 20050101, end: 20050101
  3. ATIVAN [Suspect]
     Indication: MOTION SICKNESS
     Dates: start: 20050101, end: 20050101

REACTIONS (1)
  - CONVULSION [None]
